FAERS Safety Report 20224403 (Version 1)
Quarter: 2021Q4

REPORT INFORMATION
  Report Type: Spontaneous
  Country: US (occurrence: None)
  Receive Date: 20211223
  Receipt Date: 20211223
  Transmission Date: 20220303
  Serious: Yes (Hospitalization)
  Sender: FDA-Public Use
  Company Number: None

PATIENT
  Age: 73 Year
  Sex: Male

DRUGS (1)
  1. CASIRIVIMAB\IMDEVIMAB [Suspect]
     Active Substance: CASIRIVIMAB\IMDEVIMAB
     Indication: COVID-19
     Route: 058
     Dates: start: 20211214

REACTIONS (6)
  - Diarrhoea [None]
  - Cystitis [None]
  - Hypoxia [None]
  - Bacterial test positive [None]
  - Blood glucose increased [None]
  - Blood lactate dehydrogenase increased [None]
